FAERS Safety Report 8814071 (Version 3)
Quarter: 2012Q4

REPORT INFORMATION
  Report Type: 
  Country: US (occurrence: US)
  Receive Date: 20120928
  Receipt Date: 20121121
  Transmission Date: 20130627
  Serious: Yes (Other)
  Sender: FDA-Public Use
  Company Number: US-PFIZER INC-2012238207

PATIENT
  Age: 82 Year
  Sex: Male
  Weight: 81.63 kg

DRUGS (10)
  1. ATORVASTATIN CALCIUM [Suspect]
     Indication: HIGH CHOLESTEROL
     Dosage: 20 mg, once daily
     Dates: start: 201209, end: 201210
  2. ATORVASTATIN CALCIUM [Suspect]
     Indication: TRIGLYCERIDES HIGH
  3. TENORMIN [Concomitant]
     Dosage: UNK
  4. VITAMIN B12 [Concomitant]
     Dosage: UNK
  5. FISH OIL [Concomitant]
     Dosage: UNK, 1x/day
  6. FOLIC ACID [Concomitant]
     Dosage: UNK
  7. METHOTREXATE [Concomitant]
     Dosage: 2.5 mg, three times a week
  8. NIACIN [Concomitant]
     Dosage: UNK
  9. SLO-NIACIN [Concomitant]
     Dosage: UNK
  10. GABAMAX [Concomitant]
     Dosage: UNK

REACTIONS (6)
  - Blindness [Recovered/Resolved]
  - Amnesia [Recovered/Resolved]
  - Pollakiuria [Not Recovered/Not Resolved]
  - Pain in extremity [Recovered/Resolved]
  - Irritability [Recovered/Resolved]
  - Rhinorrhoea [Not Recovered/Not Resolved]
